FAERS Safety Report 12761006 (Version 4)
Quarter: 2016Q4

REPORT INFORMATION
  Report Type: Spontaneous
  Country: CA (occurrence: CA)
  Receive Date: 20160919
  Receipt Date: 20161205
  Transmission Date: 20170207
  Serious: Yes (Other)
  Sender: FDA-Public Use
  Company Number: CA-ROCHE-1831601

PATIENT
  Age: 67 Year
  Sex: Male

DRUGS (12)
  1. AERIUS (CANADA) [Concomitant]
  2. VITAMIN B-100 [Concomitant]
  3. RITUXAN [Suspect]
     Active Substance: RITUXIMAB
     Indication: NON-HODGKIN^S LYMPHOMA
     Route: 042
     Dates: start: 201507, end: 201512
  4. BENDAMUSTINE [Suspect]
     Active Substance: BENDAMUSTINE
     Indication: MANTLE CELL LYMPHOMA
  5. VITAMIN B12 [Concomitant]
     Active Substance: CYANOCOBALAMIN
  6. BENADRYL [Concomitant]
     Active Substance: DIPHENHYDRAMINE HYDROCHLORIDE
  7. VITAMIN C [Concomitant]
     Active Substance: ASCORBIC ACID
  8. ASPIRIN. [Concomitant]
     Active Substance: ASPIRIN
  9. NORVASC [Concomitant]
     Active Substance: AMLODIPINE BESYLATE
  10. BENDAMUSTINE [Suspect]
     Active Substance: BENDAMUSTINE
     Indication: NON-HODGKIN^S LYMPHOMA
     Route: 065
     Dates: start: 201507, end: 201512
  11. CRESTOR [Concomitant]
     Active Substance: ROSUVASTATIN CALCIUM
  12. RITUXAN [Suspect]
     Active Substance: RITUXIMAB
     Indication: MANTLE CELL LYMPHOMA
     Route: 042
     Dates: start: 20161201

REACTIONS (9)
  - Pneumonitis [Not Recovered/Not Resolved]
  - Cough [Not Recovered/Not Resolved]
  - Productive cough [Not Recovered/Not Resolved]
  - Dizziness [Unknown]
  - Blood pressure increased [Unknown]
  - Malaise [Unknown]
  - Pleural effusion [Not Recovered/Not Resolved]
  - Oxygen saturation decreased [Unknown]
  - Hypersensitivity [Unknown]

NARRATIVE: CASE EVENT DATE: 201507
